FAERS Safety Report 21690329 (Version 1)
Quarter: 2022Q4

REPORT INFORMATION
  Report Type: Spontaneous
  Country: US (occurrence: US)
  Receive Date: 20221206
  Receipt Date: 20221206
  Transmission Date: 20230113
  Serious: No
  Sender: FDA-Public Use
  Company Number: US-BRAINTREE LABORATORIES, INC.-2022BTE00927

PATIENT
  Age: 68 Year
  Sex: Female

DRUGS (11)
  1. SUTAB [Suspect]
     Active Substance: MAGNESIUM SULFATE\POTASSIUM CHLORIDE\SODIUM SULFATE
     Indication: Colonoscopy
     Dosage: 2 X 12 TABLETS, 1X
     Route: 048
     Dates: start: 20221101, end: 20221102
  2. LEVOTHYROXINE [Concomitant]
     Active Substance: LEVOTHYROXINE
  3. VITAMIN D NOS [Concomitant]
     Active Substance: VITAMIN D NOS
  4. COENZYME Q10 [Concomitant]
     Active Substance: DIETARY SUPPLEMENT\UBIDECARENONE
  5. PRAVASTATIN [Concomitant]
     Active Substance: PRAVASTATIN
  6. METOPROLOL [Concomitant]
     Active Substance: METOPROLOL
  7. OMEGA 3 FISH OIL [FISH OIL] [Concomitant]
  8. VITAMIN B12 [Concomitant]
     Active Substance: CYANOCOBALAMIN
  9. COMPLEX B [VITAMIN B COMPLEX] [Concomitant]
  10. ZINC [Concomitant]
     Active Substance: ZINC
  11. ASPIRIN [Concomitant]
     Active Substance: ASPIRIN

REACTIONS (8)
  - Dehydration [Recovered/Resolved]
  - Oesophageal pain [Recovering/Resolving]
  - Retching [Recovered/Resolved]
  - Asthenia [Unknown]
  - Throat irritation [Recovering/Resolving]
  - Abdominal distension [Recovered/Resolved]
  - Vomiting projectile [Recovered/Resolved]
  - Wrong technique in product usage process [Recovered/Resolved]

NARRATIVE: CASE EVENT DATE: 20221101
